FAERS Safety Report 11986863 (Version 1)
Quarter: 2016Q1

REPORT INFORMATION
  Report Type: Spontaneous
  Country: US (occurrence: None)
  Receive Date: 20160201
  Receipt Date: 20160201
  Transmission Date: 20160526
  Serious: No
  Sender: FDA-Public Use
  Company Number: None

PATIENT
  Age: 56 Year
  Sex: Female
  Weight: 79.38 kg

DRUGS (1)
  1. IPRATROPIUM BROMIDE AND ALBUTEROL SULFATE [Suspect]
     Active Substance: ALBUTEROL SULFATE\IPRATROPIUM BROMIDE
     Indication: ASTHMA
     Dosage: 1 VIAL, FOUR TIMES DAILY, INHALATION, RESPIRATORY
     Route: 055

REACTIONS (4)
  - Product container seal issue [None]
  - Product packaging quantity issue [None]
  - Device difficult to use [None]
  - Product closure removal difficult [None]

NARRATIVE: CASE EVENT DATE: 20160129
